FAERS Safety Report 4623213-2 (Version None)
Quarter: 2005Q1

REPORT INFORMATION
  Report Type: 
  Country: None (occurrence: None)
  Receive Date: 20050329
  Receipt Date: 20050321
  Transmission Date: 20050727
  Serious: Yes (Hospitalization)
  Sender: FDA-Public Use
  Company Number: TPA2005A00182

PATIENT
  Age: 81 Year
  Sex: Female
  Weight: 81.6475 kg

DRUGS (10)
  1. ACTOS [Suspect]
     Indication: DIABETES MELLITUS NON-INSULIN-DEPENDENT
     Dosage: 30 MG, 1 IN 1 D, PER ORAL
     Route: 048
  2. ZOLOFT [Concomitant]
  3. LIPITOR [Concomitant]
  4. PROTONIX [Concomitant]
  5. ATENOLOL [Concomitant]
  6. ASPIRIN [Concomitant]
  7. ZESTRIL [Concomitant]
  8. VIOXX [Concomitant]
  9. NPH INSULIN [Concomitant]
  10. REGULAR INSULIN (INSULIN /N/A/) [Concomitant]

REACTIONS (8)
  - AMNESIA [None]
  - ELECTROCARDIOGRAM QRS COMPLEX ABNORMAL [None]
  - FALL [None]
  - HYPOXIA [None]
  - MYOCARDIAL INFARCTION [None]
  - PAIN IN EXTREMITY [None]
  - SUPRAVENTRICULAR EXTRASYSTOLES [None]
  - URINARY TRACT INFECTION [None]
